FAERS Safety Report 8818650 (Version 1)
Quarter: 2012Q4

REPORT INFORMATION
  Report Type: 
  Country: DK (occurrence: DK)
  Receive Date: 20121001
  Receipt Date: 20121001
  Transmission Date: 20130627
  Serious: Yes (Other)
  Sender: FDA-Public Use
  Company Number: DK-ROCHE-1137661

PATIENT

DRUGS (4)
  1. XELODA [Suspect]
     Indication: BILE DUCT CANCER
     Route: 065
  2. PANITUMUMAB [Suspect]
     Indication: BILE DUCT CANCER
     Route: 042
  3. GEMCITABINE [Suspect]
     Indication: BILE DUCT CANCER
     Route: 065
  4. OXALIPLATIN [Suspect]
     Indication: BILE DUCT CANCER
     Route: 065

REACTIONS (11)
  - Rash [Unknown]
  - Febrile neutropenia [Unknown]
  - Nausea [Unknown]
  - Infection [Unknown]
  - Vomiting [Unknown]
  - Stomatitis [Unknown]
  - Peripheral sensory neuropathy [Unknown]
  - Diarrhoea [Unknown]
  - Peripheral motor neuropathy [Unknown]
  - Pain [Unknown]
  - Palmar-plantar erythrodysaesthesia syndrome [Unknown]
